FAERS Safety Report 24568918 (Version 1)
Quarter: 2024Q4

REPORT INFORMATION
  Report Type: Spontaneous
  Country: US (occurrence: US)
  Receive Date: 20241031
  Receipt Date: 20241031
  Transmission Date: 20250114
  Serious: Yes (Other)
  Sender: BRISTOL-MYERS SQUIBB COMPANY
  Company Number: US-BRISTOL-MYERS SQUIBB COMPANY-2024-170431

PATIENT
  Age: 80 Year
  Sex: Female
  Weight: 77.56 kg

DRUGS (4)
  1. ELIQUIS [Suspect]
     Active Substance: APIXABAN
     Indication: Peripheral venous disease
     Route: 048
  2. ELIQUIS [Suspect]
     Active Substance: APIXABAN
     Indication: Thrombosis
     Route: 048
  3. ELIQUIS [Suspect]
     Active Substance: APIXABAN
     Indication: Sinus node dysfunction
  4. ELIQUIS [Suspect]
     Active Substance: APIXABAN
     Indication: Arrhythmia

REACTIONS (5)
  - Reproductive tract disorder [Unknown]
  - Memory impairment [Unknown]
  - Product use issue [Unknown]
  - Cardiac disorder [Unknown]
  - Type 2 diabetes mellitus [Unknown]

NARRATIVE: CASE EVENT DATE: 20240301
